FAERS Safety Report 24106953 (Version 1)
Quarter: 2024Q3

REPORT INFORMATION
  Report Type: Report from Study
  Country: US (occurrence: US)
  Receive Date: 20240717
  Receipt Date: 20240717
  Transmission Date: 20241017
  Serious: Yes (Other)
  Sender: ABBVIE
  Company Number: US-ABBVIE-5813165

PATIENT
  Age: 64 Year
  Sex: Female

DRUGS (2)
  1. RINVOQ [Suspect]
     Active Substance: UPADACITINIB
     Indication: Dermatitis atopic
     Dosage: STRENGTH:15MG
     Route: 048
     Dates: start: 20240425, end: 202405
  2. RINVOQ [Suspect]
     Active Substance: UPADACITINIB
     Indication: Dermatitis atopic
     Dosage: STRENGTH:15MG, LAST ADMIN DATE: 2024
     Route: 048
     Dates: start: 202403

REACTIONS (2)
  - Shoulder operation [Unknown]
  - Lymphoma [Unknown]

NARRATIVE: CASE EVENT DATE: 20240408
